FAERS Safety Report 21232286 (Version 1)
Quarter: 2022Q3

REPORT INFORMATION
  Report Type: Spontaneous
  Country: US (occurrence: US)
  Receive Date: 20220819
  Receipt Date: 20220819
  Transmission Date: 20221027
  Serious: Yes (Other)
  Sender: FDA-Public Use
  Company Number: US-APOTEX-2022AP011344

PATIENT

DRUGS (1)
  1. BIVALIRUDIN [Suspect]
     Active Substance: BIVALIRUDIN
     Indication: Heparin-induced thrombocytopenia
     Dosage: UNK
     Route: 042

REACTIONS (2)
  - Cerebral haemorrhage [Unknown]
  - Haemorrhage [Unknown]
